FAERS Safety Report 7359940-6 (Version None)
Quarter: 2011Q1

REPORT INFORMATION
  Report Type: 
  Country: None (occurrence: None)
  Receive Date: 20110317
  Receipt Date: 20110309
  Transmission Date: 20110831
  Serious: Yes (Hospitalization, Other)
  Sender: FDA-Public Use
  Company Number: US-MPIJNJ-2011-00956

PATIENT
  Age: 83 Year
  Sex: Female
  Weight: 82 kg

DRUGS (5)
  1. VELCADE [Suspect]
     Indication: MULTIPLE MYELOMA
     Dosage: 1.3 MG/M2, CYCLIC
     Route: 040
     Dates: start: 20110207, end: 20110217
  2. DEXAMETHASONE [Suspect]
     Indication: MULTIPLE MYELOMA
     Dosage: 20 MG, CYCLIC
     Route: 048
     Dates: start: 20110207, end: 20110218
  3. LENALIDOMIDE [Suspect]
     Indication: MULTIPLE MYELOMA
     Dosage: 25 MG, CYCLIC
     Route: 048
     Dates: start: 20110207, end: 20110220
  4. ASPIRIN [Concomitant]
     Indication: PRODUCT USED FOR UNKNOWN INDICATION
     Dosage: 325 MG, QD
     Route: 048
  5. WARFARIN SODIUM [Concomitant]
     Indication: PRODUCT USED FOR UNKNOWN INDICATION

REACTIONS (8)
  - ATRIAL FIBRILLATION [None]
  - ANKLE FRACTURE [None]
  - ATRIOVENTRICULAR BLOCK COMPLETE [None]
  - DYSPNOEA [None]
  - DILATATION VENTRICULAR [None]
  - RENAL FAILURE ACUTE [None]
  - THERAPEUTIC RESPONSE DECREASED [None]
  - BRONCHITIS [None]
